FAERS Safety Report 9607356 (Version 1)
Quarter: 2013Q4

REPORT INFORMATION
  Report Type: Spontaneous
  Country: US (occurrence: US)
  Receive Date: 20131009
  Receipt Date: 20131009
  Transmission Date: 20140711
  Serious: Yes (Hospitalization)
  Sender: FDA-Public Use
  Company Number: US-JNJFOC-20131001862

PATIENT
  Age: 59 Year
  Sex: Female
  Weight: 97.07 kg

DRUGS (11)
  1. TYLENOL [Suspect]
     Route: 065
  2. TYLENOL [Suspect]
     Indication: PRODUCT USED FOR UNKNOWN INDICATION
     Route: 065
  3. CELEBREX [Interacting]
     Indication: OSTEOARTHRITIS
     Route: 048
  4. TEMAZEPAM [Suspect]
     Indication: INSOMNIA
     Route: 065
  5. PRAVASTATIN [Suspect]
     Indication: BLOOD CHOLESTEROL INCREASED
     Route: 065
     Dates: start: 2013
  6. TRAMADOL [Suspect]
     Indication: PAIN
     Route: 048
  7. PROTONIX [Suspect]
     Indication: PRODUCT USED FOR UNKNOWN INDICATION
     Route: 065
  8. METOPROLOL [Suspect]
     Indication: PRODUCT USED FOR UNKNOWN INDICATION
     Route: 065
  9. LEVOTHYROXINE [Suspect]
     Indication: THYROID DISORDER
     Route: 065
  10. TRIAMTERENE AND HYDROCHLOROTHIAZIDE [Suspect]
     Indication: DIURETIC THERAPY
     Dosage: 37.5MG/25MG
     Route: 048
     Dates: start: 201303
  11. WARFARIN [Suspect]
     Indication: BLOOD DISORDER
     Route: 065

REACTIONS (4)
  - Osteoarthritis [Unknown]
  - Blood cholesterol increased [Unknown]
  - Blood potassium decreased [Unknown]
  - Drug interaction [Unknown]
